FAERS Safety Report 12378790 (Version 2)
Quarter: 2016Q2

REPORT INFORMATION
  Report Type: Spontaneous
  Country: DE (occurrence: DE)
  Receive Date: 20160517
  Receipt Date: 20160525
  Transmission Date: 20160815
  Serious: Yes (Life-Threatening, Hospitalization)
  Sender: FDA-Public Use
  Company Number: DE-JNJFOC-20160511264

PATIENT
  Age: 68 Year
  Sex: Female
  Weight: 67 kg

DRUGS (2)
  1. XEPLION [Suspect]
     Active Substance: PALIPERIDONE PALMITATE
     Indication: SCHIZOPHRENIA
     Route: 030
     Dates: start: 20160325, end: 20160325
  2. XEPLION [Suspect]
     Active Substance: PALIPERIDONE PALMITATE
     Indication: SCHIZOPHRENIA
     Route: 030
     Dates: start: 20160318, end: 20160318

REACTIONS (1)
  - Pulmonary embolism [Recovered/Resolved with Sequelae]

NARRATIVE: CASE EVENT DATE: 20160413
